FAERS Safety Report 19245719 (Version 3)
Quarter: 2021Q4

REPORT INFORMATION
  Report Type: Report from Study
  Country: US (occurrence: US)
  Receive Date: 20210511
  Receipt Date: 20211110
  Transmission Date: 20220303
  Serious: Yes (Hospitalization, Other)
  Sender: FDA-Public Use
  Company Number: US-SEATTLE GENETICS-2021SGN02643

PATIENT
  Age: 58 Year
  Sex: Female

DRUGS (3)
  1. TUCATINIB [Suspect]
     Active Substance: TUCATINIB
     Indication: Breast cancer
  2. TUCATINIB [Suspect]
     Active Substance: TUCATINIB
     Dosage: UNK
  3. TUCATINIB [Suspect]
     Active Substance: TUCATINIB
     Dosage: 150 MG

REACTIONS (5)
  - Hypoaesthesia [Unknown]
  - Head injury [Unknown]
  - Brain oedema [Unknown]
  - Neoplasm [Unknown]
  - Hospice care [Unknown]

NARRATIVE: CASE EVENT DATE: 20210921
